FAERS Safety Report 16601359 (Version 3)
Quarter: 2022Q3

REPORT INFORMATION
  Report Type: Report from Study
  Country: MX (occurrence: MX)
  Receive Date: 20190719
  Receipt Date: 20220702
  Transmission Date: 20221027
  Serious: Yes (Life-Threatening, Hospitalization, Disabling, Other)
  Sender: FDA-Public Use
  Company Number: PHHY2014MX002313

PATIENT
  Sex: Female
  Weight: 54 kg

DRUGS (7)
  1. METFORMIN HYDROCHLORIDE\VILDAGLIPTIN [Suspect]
     Active Substance: METFORMIN HYDROCHLORIDE\VILDAGLIPTIN
     Indication: Diabetes mellitus
     Dosage: 0.5 DOSAGE FORM, QD
     Route: 048
  2. METFORMIN HYDROCHLORIDE\VILDAGLIPTIN [Suspect]
     Active Substance: METFORMIN HYDROCHLORIDE\VILDAGLIPTIN
     Dosage: 0.75 DOSAGE FORM, QD, (3 YEARS AND 8 MONTHS)
     Route: 048
  3. METFORMIN HYDROCHLORIDE\VILDAGLIPTIN [Suspect]
     Active Substance: METFORMIN HYDROCHLORIDE\VILDAGLIPTIN
     Dosage: 0.5 DOSAGE FORM, QD
     Route: 048
     Dates: start: 202201
  4. CINNARIZINE [Concomitant]
     Active Substance: CINNARIZINE
     Indication: Cardiovascular disorder
     Dosage: 1 DOSAGE FORM, QD
     Route: 065
     Dates: start: 200901
  5. CINNARIZINE [Concomitant]
     Active Substance: CINNARIZINE
     Dosage: 2 DOSAGE FORM, QD
     Route: 065
  6. OMEPRAZOLE [Concomitant]
     Active Substance: OMEPRAZOLE
     Indication: Dyspepsia
     Dosage: 1 DOSAGE FORM, QD, (IN THE MORNING)
     Route: 065
  7. OMEPRAZOLE [Concomitant]
     Active Substance: OMEPRAZOLE
     Indication: Gastritis

REACTIONS (23)
  - Malaise [Unknown]
  - Fall [Recovering/Resolving]
  - Fracture [Recovering/Resolving]
  - Dysstasia [Recovered/Resolved]
  - Gastric neoplasm [Unknown]
  - Cataract [Unknown]
  - Visual impairment [Unknown]
  - Blood glucose increased [Unknown]
  - Multiple fractures [Recovered/Resolved]
  - Vomiting [Recovered/Resolved]
  - Dizziness [Recovered/Resolved]
  - Nausea [Not Recovered/Not Resolved]
  - Eye disorder [Not Recovered/Not Resolved]
  - Blood cholesterol increased [Unknown]
  - Diarrhoea [Recovered/Resolved]
  - Spinal disorder [Not Recovered/Not Resolved]
  - Gait disturbance [Not Recovered/Not Resolved]
  - Pain in extremity [Not Recovered/Not Resolved]
  - Cardiac disorder [Not Recovered/Not Resolved]
  - Feeling abnormal [Not Recovered/Not Resolved]
  - Incorrect dose administered [Not Recovered/Not Resolved]
  - Wrong technique in product usage process [Unknown]
  - Drug ineffective [Unknown]
